FAERS Safety Report 15300974 (Version 2)
Quarter: 2019Q2

REPORT INFORMATION
  Report Type: Spontaneous
  Country: CA (occurrence: CA)
  Receive Date: 20180821
  Receipt Date: 20190415
  Transmission Date: 20190711
  Serious: Yes (Hospitalization)
  Sender: FDA-Public Use
  Company Number: CA-HLSUS-2018-CA-001228

PATIENT
  Age: 62 Year
  Sex: Female

DRUGS (2)
  1. QUETIAPINE. [Concomitant]
     Active Substance: QUETIAPINE
  2. CLOZAPINE. [Suspect]
     Active Substance: CLOZAPINE
     Dosage: 300MG 1 EVERY 1 DAY
     Route: 048
     Dates: start: 20160601, end: 20180118

REACTIONS (4)
  - Allergic eosinophilia [Recovered/Resolved]
  - Acute kidney injury [Recovered/Resolved]
  - Hyponatraemia [Recovered/Resolved]
  - Tubulointerstitial nephritis [Recovered/Resolved]

NARRATIVE: CASE EVENT DATE: 20180108
